FAERS Safety Report 23078514 (Version 1)
Quarter: 2023Q4

REPORT INFORMATION
  Report Type: Spontaneous
  Country: CA (occurrence: CA)
  Receive Date: 20231018
  Receipt Date: 20231018
  Transmission Date: 20240109
  Serious: Yes (Disabling, Other)
  Sender: FDA-Public Use
  Company Number: CA-002147023-NVSC2023CA052827

PATIENT
  Age: 65 Year
  Sex: Female
  Weight: 72.57 kg

DRUGS (1)
  1. CIPROFLOXACIN [Suspect]
     Active Substance: CIPROFLOXACIN
     Indication: Allergy test
     Dosage: 1 MG (SINGLE DOSE)
     Route: 048
     Dates: start: 20221209, end: 20221209

REACTIONS (7)
  - Burning sensation [Not Recovered/Not Resolved]
  - Body temperature increased [Not Recovered/Not Resolved]
  - Joint swelling [Not Recovered/Not Resolved]
  - Visual impairment [Not Recovered/Not Resolved]
  - Dyspnoea [Not Recovered/Not Resolved]
  - Arthralgia [Not Recovered/Not Resolved]
  - Product use in unapproved indication [Not Recovered/Not Resolved]

NARRATIVE: CASE EVENT DATE: 20221209
